FAERS Safety Report 4745101-3 (Version None)
Quarter: 2005Q3

REPORT INFORMATION
  Report Type: 
  Country: None (occurrence: None)
  Receive Date: 20050811
  Receipt Date: 20050729
  Transmission Date: 20060218
  Serious: Yes (Death, Hospitalization)
  Sender: FDA-Public Use
  Company Number: 215718

PATIENT
  Age: 66 Year
  Sex: Female

DRUGS (10)
  1. RAPTIVA [Suspect]
     Indication: PSORIASIS
     Dosage: SEE IMAGE, SUBCUTANEOUS
     Route: 058
     Dates: start: 20040201, end: 20040301
  2. RAPTIVA [Suspect]
     Indication: PSORIASIS
     Dosage: SEE IMAGE, SUBCUTANEOUS
     Route: 058
     Dates: start: 20040401, end: 20040628
  3. RAPTIVA [Suspect]
     Indication: PSORIASIS
     Dosage: SEE IMAGE, SUBCUTANEOUS
     Route: 058
     Dates: start: 20040802, end: 20050201
  4. RAPTIVA [Suspect]
     Indication: PSORIASIS
     Dosage: SEE IMAGE, SUBCUTANEOUS
     Route: 058
     Dates: start: 20050301
  5. PREDNISONE [Concomitant]
  6. ALLOPURINOL [Concomitant]
  7. PREVACID [Concomitant]
  8. ZESTRIL [Concomitant]
  9. ZIAC [Concomitant]
  10. VALTREX [Concomitant]

REACTIONS (29)
  - ABDOMINAL ABSCESS [None]
  - ACTIVATED PARTIAL THROMBOPLASTIN TIME PROLONGED [None]
  - ANAEMIA [None]
  - ANASTOMOTIC LEAK [None]
  - AORTIC THROMBOSIS [None]
  - ARTERIAL THROMBOSIS LIMB [None]
  - ATELECTASIS [None]
  - CONDITION AGGRAVATED [None]
  - DIARRHOEA [None]
  - DIVERTICULITIS [None]
  - ENTEROCUTANEOUS FISTULA [None]
  - GASTROINTESTINAL HAEMORRHAGE [None]
  - HEPATITIS NON-A NON-B NON-C [None]
  - INTESTINAL FISTULA [None]
  - INTESTINAL ISCHAEMIA [None]
  - PERITONITIS [None]
  - PLEURAL EFFUSION [None]
  - POST PROCEDURAL COMPLICATION [None]
  - PROTHROMBIN TIME PROLONGED [None]
  - PSORIASIS [None]
  - RENAL FAILURE ACUTE [None]
  - RENAL INFARCT [None]
  - RESPIRATORY FAILURE [None]
  - SMALL INTESTINAL PERFORATION [None]
  - SPLENIC INFARCTION [None]
  - THROMBOCYTOPENIA [None]
  - VENOUS INSUFFICIENCY [None]
  - VOMITING [None]
  - WEIGHT DECREASED [None]
